FAERS Safety Report 11066590 (Version 2)
Quarter: 2015Q2

REPORT INFORMATION
  Report Type: Spontaneous
  Country: US (occurrence: US)
  Receive Date: 20150425
  Receipt Date: 20150525
  Transmission Date: 20150821
  Serious: Yes (Other)
  Sender: FDA-Public Use
  Company Number: US-JNJFOC-20150414920

PATIENT
  Age: 65 Year
  Sex: Female

DRUGS (4)
  1. INFLIXIMAB, RECOMBINANT [Suspect]
     Active Substance: INFLIXIMAB
     Indication: SJOGREN^S SYNDROME
     Dosage: WEEKS 0, 2, AND 6.
     Route: 042
  2. INFLIXIMAB, RECOMBINANT [Suspect]
     Active Substance: INFLIXIMAB
     Indication: PSORIATIC ARTHROPATHY
     Dosage: WEEKS 0, 2, AND 6.
     Route: 042
  3. INFLIXIMAB, RECOMBINANT [Suspect]
     Active Substance: INFLIXIMAB
     Indication: SJOGREN^S SYNDROME
     Dosage: WEEKS 0, 2, AND 6.
     Route: 042
  4. INFLIXIMAB, RECOMBINANT [Suspect]
     Active Substance: INFLIXIMAB
     Indication: PSORIATIC ARTHROPATHY
     Dosage: WEEKS 0, 2, AND 6.
     Route: 042

REACTIONS (2)
  - Peripheral sensory neuropathy [Unknown]
  - Product use issue [Unknown]
